FAERS Safety Report 9275716 (Version 2)
Quarter: 2013Q2

REPORT INFORMATION
  Report Type: Spontaneous
  Country: US (occurrence: US)
  Receive Date: 20130507
  Receipt Date: 20130509
  Transmission Date: 20140414
  Serious: Yes (Hospitalization)
  Sender: FDA-Public Use
  Company Number: US-SANOFI-AVENTIS-2013SA045717

PATIENT
  Age: 51 Year
  Sex: Female

DRUGS (10)
  1. AUBAGIO [Suspect]
     Indication: MULTIPLE SCLEROSIS
     Route: 048
     Dates: start: 201304, end: 201305
  2. DETROL [Concomitant]
  3. METHADONE [Concomitant]
     Dosage: DOSE: 10 MG/ 5 ML SOLUTION
  4. NEURONTIN [Concomitant]
  5. TEGRETOL [Concomitant]
     Dosage: DOSE: 100 MG/5 ML SUSPENSION
  6. VALIUM [Concomitant]
  7. BACLOFEN [Concomitant]
  8. ALPRAZOLAM [Concomitant]
  9. LEXAPRO [Concomitant]
  10. ZANAFLEX [Concomitant]

REACTIONS (2)
  - Full blood count decreased [Not Recovered/Not Resolved]
  - Adverse drug reaction [Unknown]
